FAERS Safety Report 16660097 (Version 1)
Quarter: 2019Q3

REPORT INFORMATION
  Report Type: Spontaneous
  Country: SE (occurrence: SE)
  Receive Date: 20190802
  Receipt Date: 20190802
  Transmission Date: 20191004
  Serious: Yes (Disabling)
  Sender: FDA-Public Use
  Company Number: SE-TEVA-2019-SE-1086256

PATIENT
  Age: 74 Year
  Sex: Female
  Weight: 91 kg

DRUGS (14)
  1. CANDESARTAN CILEXETIL. [Suspect]
     Active Substance: CANDESARTAN CILEXETIL
     Dosage: 2 TABL 2GGR DAILY, 64 MG PER DAY
     Dates: start: 201811
  2. POTASSIUM CHLORIDE. [Suspect]
     Active Substance: POTASSIUM CHLORIDE
     Indication: HYPOKALAEMIA
     Dosage: 1 TABL 2GGR DAILY, 1500 MG PER DAY
     Dates: start: 20181129
  3. WARAN 2,5 MG TABLETT [Suspect]
     Active Substance: WARFARIN SODIUM
     Indication: THROMBOSIS PROPHYLAXIS
     Dosage: DOSE AFTER A BLOOD TEST.  1, 2.2.1.2.1.2. WEEKLY DOSE
     Dates: start: 2009
  4. FURIX 40 MG TABLETT (FUROSEMIDE) [Suspect]
     Active Substance: FUROSEMIDE
     Indication: FLUID RETENTION
     Dosage: 1 TABL DAILY, MORE IF NECESSARY, 40 MG PER DAY
     Dates: start: 2012
  5. MIRTAZAPINE. [Suspect]
     Active Substance: MIRTAZAPINE
     Indication: SLEEP DISORDER
     Dosage: 0.5 TABL 1GGR DAILY AT 19, 7.5 MG PER DAY
     Dates: start: 20181127
  6. DIVISUN 2000 IE TABLETT [Suspect]
     Active Substance: CHOLECALCIFEROL
     Indication: VITAMIN SUPPLEMENTATION
     Dosage: 1 TABL 1 GGR DAILY, 2000 IU PER DAY
     Dates: start: 20181210, end: 20190619
  7. ALVEDON FORTE 1 G FILMDRAGERAD TABLETT [Suspect]
     Active Substance: ACETAMINOPHEN
     Indication: PAIN
     Dosage: 1 TABL IF NECESSARY
     Dates: start: 20181227
  8. PREDNISOLONE. [Suspect]
     Active Substance: PREDNISOLONE
     Indication: RHEUMATIC DISORDER
     Dosage: 1 TABL 1 GGR DAILY, 2.5 MG DAILY
     Dates: start: 2004
  9. METOPROLOL. [Suspect]
     Active Substance: METOPROLOL
     Dosage: 50 MG PER DAY
     Dates: start: 2011
  10. BEHEPAN 1 MG FILMDRAGERAD TABLETT (CYANOCOBALAMIN) [Suspect]
     Active Substance: CYANOCOBALAMIN
     Indication: VITAMIN B12 DEFICIENCY
     Dosage: 1 TABL 1GGR DAILY, 1 MG PER DAY
     Dates: start: 2012
  11. ALLOPURINOL. [Suspect]
     Active Substance: ALLOPURINOL
     Indication: PROPHYLAXIS
     Dosage: 2 TABL 1GGR DAILY, 200 MG PER DAY
     Dates: start: 20181126
  12. DIVISUN 2000 IE TABLETT [Suspect]
     Active Substance: CHOLECALCIFEROL
     Indication: OSTEOPOROSIS
  13. OMEPRAZOLE. [Suspect]
     Active Substance: OMEPRAZOLE
     Indication: GASTRIC PH DECREASED
     Dosage: 2 KAPSL 1GGR DAILY FOR 4 WEEKS. THEN 1 KAPS 1GGR DAILY
     Dates: start: 20181129
  14. FOLIC ACID, ANHYDROUS [Suspect]
     Active Substance: FOLIC ACID
     Indication: FOLATE DEFICIENCY
     Dosage: 1 MG PER DAY
     Dates: start: 2017

REACTIONS (1)
  - Drug eruption [Not Recovered/Not Resolved]

NARRATIVE: CASE EVENT DATE: 201901
